FAERS Safety Report 13896083 (Version 1)
Quarter: 2017Q3

REPORT INFORMATION
  Report Type: Spontaneous
  Country: US (occurrence: None)
  Receive Date: 20170816
  Receipt Date: 20170816
  Transmission Date: 20171127
  Serious: Yes (Death)
  Sender: FDA-Public Use
  Company Number: None

PATIENT
  Age: 67 Year
  Sex: Male

DRUGS (6)
  1. LONSURF [Suspect]
     Active Substance: TIPIRACIL HYDROCHLORIDE\TRIFLURIDINE
     Indication: RECTAL CANCER
     Dosage: 30/12/28 MG, BID, PO
     Route: 048
     Dates: start: 20160708, end: 2017
  2. METHYLPRED [Concomitant]
     Active Substance: METHYLPREDNISOLONE
  3. LONSURF [Suspect]
     Active Substance: TIPIRACIL HYDROCHLORIDE\TRIFLURIDINE
     Indication: RECTAL CANCER
     Dosage: 40/16.38 MG, BID, PO
     Route: 048
     Dates: start: 20160708, end: 2017
  4. CIPRO [Concomitant]
     Active Substance: CIPROFLOXACIN HYDROCHLORIDE
  5. LONSURF [Suspect]
     Active Substance: TIPIRACIL HYDROCHLORIDE\TRIFLURIDINE
     Indication: COLON CANCER
     Dosage: 30/12/28 MG, BID, PO
     Route: 048
     Dates: start: 20160708, end: 2017
  6. LONSURF [Suspect]
     Active Substance: TIPIRACIL HYDROCHLORIDE\TRIFLURIDINE
     Indication: COLON CANCER
     Dosage: 40/16.38 MG, BID, PO
     Route: 048
     Dates: start: 20160708, end: 2017

REACTIONS (1)
  - Death [None]

NARRATIVE: CASE EVENT DATE: 20170809
